FAERS Safety Report 9113648 (Version 1)
Quarter: 2013Q1

REPORT INFORMATION
  Report Type: Report from Study
  Country: US (occurrence: US)
  Receive Date: 20130129
  Receipt Date: 20130129
  Transmission Date: 20140127
  Serious: Yes (Hospitalization)
  Sender: FDA-Public Use
  Company Number: US-009507513-1301USA010657

PATIENT
  Age: 64 Year
  Sex: Male

DRUGS (2)
  1. TEMOZOLOMIDE [Suspect]
     Indication: GLIOBLASTOMA MULTIFORME
     Dosage: 75 MG/M2 (200 MG), QD
     Dates: start: 20121119
  2. STUDY DRUG (UNSPECIFIED) [Suspect]
     Indication: GLIOBLASTOMA MULTIFORME
     Dosage: UNK
     Route: 048
     Dates: start: 20121119

REACTIONS (2)
  - Dyspnoea [Recovering/Resolving]
  - Anaemia [Recovering/Resolving]
